FAERS Safety Report 20246369 (Version 1)
Quarter: 2021Q4

REPORT INFORMATION
  Report Type: Spontaneous
  Country: US (occurrence: None)
  Receive Date: 20211228
  Receipt Date: 20211228
  Transmission Date: 20220303
  Serious: Yes (Disabling)
  Sender: FDA-Public Use
  Company Number: None

PATIENT
  Age: 81 Year
  Sex: Male
  Weight: 50.5 kg

DRUGS (2)
  1. TOCILIZUMAB [Suspect]
     Active Substance: TOCILIZUMAB
     Indication: COVID-19
     Dosage: OTHER FREQUENCY : ONCE;?
     Route: 042
     Dates: start: 20211211, end: 20211211
  2. DEXAMETHASONE [Concomitant]
     Active Substance: DEXAMETHASONE
     Dates: start: 20211211, end: 20211215

REACTIONS (8)
  - Tachycardia [None]
  - Anxiety [None]
  - Dyspnoea [None]
  - Hypoxia [None]
  - Atrial fibrillation [None]
  - Positive airway pressure therapy [None]
  - Device intolerance [None]
  - Complication associated with device [None]

NARRATIVE: CASE EVENT DATE: 20211216
